FAERS Safety Report 6574482-3 (Version None)
Quarter: 2010Q1

REPORT INFORMATION
  Report Type: 
  Country: None (occurrence: None)
  Receive Date: 20100209
  Receipt Date: 20090907
  Transmission Date: 20100710
  Serious: No
  Sender: FDA-Public Use
  Company Number: A0806603A

PATIENT
  Sex: Female

DRUGS (1)
  1. PAXIL [Suspect]
     Indication: DRUG USE FOR UNKNOWN INDICATION
     Dosage: 40MG UNKNOWN
     Route: 065

REACTIONS (1)
  - DIZZINESS [None]
